FAERS Safety Report 13273719 (Version 4)
Quarter: 2017Q2

REPORT INFORMATION
  Report Type: Report from Study
  Country: AU (occurrence: AU)
  Receive Date: 20170227
  Receipt Date: 20170509
  Transmission Date: 20170830
  Serious: Yes (Other)
  Sender: FDA-Public Use
  Company Number: AU-MYLANLABS-2017M1007513

PATIENT

DRUGS (10)
  1. OLANZAPINE. [Suspect]
     Active Substance: OLANZAPINE
     Indication: PSYCHOTIC DISORDER
     Dosage: UNK
     Route: 048
     Dates: end: 20170304
  2. CLOZAPINE. [Suspect]
     Active Substance: CLOZAPINE
     Indication: PSYCHOTIC DISORDER
  3. PALIPERIDONE. [Concomitant]
     Active Substance: PALIPERIDONE
     Indication: PRODUCT USED FOR UNKNOWN INDICATION
     Dosage: 100 MG, MONTHLY
     Dates: end: 20170315
  4. VALPROIC ACID. [Suspect]
     Active Substance: VALPROIC ACID
     Indication: AFFECTIVE DISORDER
  5. CLOZAPINE. [Suspect]
     Active Substance: CLOZAPINE
     Indication: SCHIZOPHRENIA
     Dosage: UNK
     Route: 048
     Dates: start: 20161229, end: 20170116
  6. VALPROIC ACID. [Suspect]
     Active Substance: VALPROIC ACID
     Indication: PSYCHOTIC DISORDER
     Dosage: 1 G, BID
     Route: 048
     Dates: end: 2017
  7. OLANZAPINE. [Suspect]
     Active Substance: OLANZAPINE
     Dosage: 7.5 MG, HS
     Route: 048
     Dates: start: 20170314
  8. VITAMIN D [Concomitant]
     Active Substance: CHOLECALCIFEROL
     Indication: PRODUCT USED FOR UNKNOWN INDICATION
  9. PREGABALIN. [Concomitant]
     Active Substance: PREGABALIN
     Indication: PRODUCT USED FOR UNKNOWN INDICATION
     Dosage: 300 MG, HS
  10. DULOXETINE. [Concomitant]
     Active Substance: DULOXETINE
     Indication: PRODUCT USED FOR UNKNOWN INDICATION
     Dosage: 120 MG, AM

REACTIONS (14)
  - Blood bicarbonate increased [Recovered/Resolved]
  - Neutropenia [Unknown]
  - Blood urea decreased [Recovered/Resolved]
  - White blood cell count decreased [Recovered/Resolved]
  - Blood albumin decreased [Not Recovered/Not Resolved]
  - Blood chloride decreased [Recovered/Resolved]
  - Pyrexia [Unknown]
  - Blood phosphorus increased [Recovered/Resolved]
  - Monocyte count decreased [Unknown]
  - Haematocrit increased [Unknown]
  - Protein total decreased [Not Recovered/Not Resolved]
  - Blood uric acid decreased [Recovered/Resolved]
  - Platelet count decreased [Recovered/Resolved]
  - Blood glucose increased [Not Recovered/Not Resolved]

NARRATIVE: CASE EVENT DATE: 20170115
